FAERS Safety Report 18207348 (Version 1)
Quarter: 2020Q3

REPORT INFORMATION
  Report Type: Spontaneous
  Country: US (occurrence: US)
  Receive Date: 20200828
  Receipt Date: 20200828
  Transmission Date: 20201103
  Serious: No
  Sender: FDA-Public Use
  Company Number: None

PATIENT
  Age: 75 Year
  Sex: Male
  Weight: 73.8 kg

DRUGS (22)
  1. ZETIA [Concomitant]
     Active Substance: EZETIMIBE
  2. ROSUVASTATIN 20MG [Concomitant]
     Active Substance: ROSUVASTATIN
  3. VITAMIN B6 [Concomitant]
     Active Substance: PYRIDOXINE HYDROCHLORIDE
  4. FINASTERIDE 5MG [Concomitant]
     Active Substance: FINASTERIDE
  5. AMLODIPINE [Concomitant]
     Active Substance: AMLODIPINE BESYLATE
  6. HYDROCHLOROTHIAZIDE 25MG [Concomitant]
     Active Substance: HYDROCHLOROTHIAZIDE
  7. PIOGLITAZONE?METFORMIN 15?500MG [Concomitant]
  8. ASCORBIC ACID. [Concomitant]
     Active Substance: ASCORBIC ACID
  9. CARVEDILOL 25MG [Concomitant]
     Active Substance: CARVEDILOL
  10. BYDUREON BCISE 2MG/0.85ML [Concomitant]
  11. TAMSULOSIN 0.4MG [Concomitant]
     Active Substance: TAMSULOSIN
  12. POTASSIUM CHLORIDE ER 10MEQ [Concomitant]
     Active Substance: POTASSIUM CHLORIDE
  13. ASPIRIN 325MG [Concomitant]
     Active Substance: ASPIRIN
  14. LISINOPRIL. [Concomitant]
     Active Substance: LISINOPRIL
  15. JANUMET 50?1000MG [Concomitant]
  16. PROCHLORPERAZINE 10MG [Concomitant]
  17. ONDANSETRON 8MG [Concomitant]
     Active Substance: ONDANSETRON
  18. MULTIVITAMIN [Concomitant]
     Active Substance: VITAMINS
  19. CAPECITABINE. [Suspect]
     Active Substance: CAPECITABINE
     Indication: COLON CANCER
     Route: 048
     Dates: start: 20200319
  20. VITAMIN D3 [Concomitant]
     Active Substance: CHOLECALCIFEROL
  21. CLARITIN [Concomitant]
     Active Substance: LORATADINE
  22. FERROUS SULFATE 325MG [Concomitant]
     Active Substance: FERROUS SULFATE

REACTIONS (1)
  - Cardiac disorder [None]

NARRATIVE: CASE EVENT DATE: 20200828
